FAERS Safety Report 7620118-X (Version None)
Quarter: 2011Q3

REPORT INFORMATION
  Report Type: 
  Country: None (occurrence: None)
  Receive Date: 20110719
  Receipt Date: 20110715
  Transmission Date: 20111222
  Serious: Yes (Death, Hospitalization, Other)
  Sender: FDA-Public Use
  Company Number: FR-BRISTOL-MYERS SQUIBB COMPANY-15907033

PATIENT
  Age: 85 Year
  Sex: Female

DRUGS (12)
  1. DESLORATADINE [Concomitant]
  2. ACETAMINOPHEN [Concomitant]
  3. IMOVANE [Concomitant]
  4. POLYSILANE [Concomitant]
  5. DUPHALAC [Concomitant]
  6. FUCIDINE CAP [Concomitant]
  7. COUMADIN [Suspect]
     Route: 048
     Dates: end: 20100201
  8. MEMANTINE HYDROCHLORIDE [Concomitant]
  9. DIGOXIN [Concomitant]
  10. REFRESH [Concomitant]
  11. OPHTIM [Concomitant]
  12. ALPRAZOLAM [Concomitant]

REACTIONS (3)
  - PNEUMONIA ASPIRATION [None]
  - EPISTAXIS [None]
  - ISCHAEMIC STROKE [None]
